FAERS Safety Report 6759508-6 (Version None)
Quarter: 2010Q2

REPORT INFORMATION
  Report Type: 
  Country: None (occurrence: None)
  Receive Date: 20100603
  Receipt Date: 20100527
  Transmission Date: 20101027
  Serious: Yes (Life-Threatening)
  Sender: FDA-Public Use
  Company Number: 2010TJ0106

PATIENT
  Sex: Female

DRUGS (1)
  1. TWINJECT 0.3 [Suspect]
     Indication: HYPERSENSITIVITY
     Dosage: 0.3 MG, AS NEEDED

REACTIONS (3)
  - DEVICE MALFUNCTION [None]
  - EXPIRED DRUG ADMINISTERED [None]
  - PRODUCT QUALITY ISSUE [None]
